FAERS Safety Report 20140135 (Version 1)
Quarter: 2021Q4

REPORT INFORMATION
  Report Type: Spontaneous
  Country: FI (occurrence: FI)
  Receive Date: 20211202
  Receipt Date: 20211202
  Transmission Date: 20220303
  Serious: Yes (Hospitalization)
  Sender: FDA-Public Use
  Company Number: None

PATIENT
  Age: 37 Year
  Sex: Female

DRUGS (5)
  1. ISOTRETINOIN [Suspect]
     Active Substance: ISOTRETINOIN
     Indication: Acne
     Dosage: 10 MILLIGRAM DAILY;
     Route: 048
     Dates: start: 20210325, end: 20210831
  2. COMIRNATY [Suspect]
     Active Substance: TOZINAMERAN
     Dosage: 1 DOSAGE FORMS DAILY; 1,DF,X1
     Route: 030
     Dates: start: 20210819, end: 20210819
  3. DULOXETINE ORION [Concomitant]
     Indication: Anxiety disorder
     Dosage: 30 MILLIGRAM DAILY;
     Route: 048
     Dates: start: 20210609, end: 20210624
  4. DULOXETIN STADA [Concomitant]
     Indication: Anxiety disorder
     Dosage: 60 MILLIGRAM DAILY;
     Route: 048
     Dates: start: 20210421, end: 20210608
  5. DROSPIRENONE [Concomitant]
     Active Substance: DROSPIRENONE
     Indication: Contraception
     Dosage: 4 MILLIGRAM DAILY;
     Route: 048
     Dates: start: 20210325, end: 20210831

REACTIONS (4)
  - Smooth muscle antibody positive [Unknown]
  - Blood alkaline phosphatase increased [Unknown]
  - Antinuclear antibody positive [Unknown]
  - Alanine aminotransferase increased [Unknown]

NARRATIVE: CASE EVENT DATE: 20210913
